FAERS Safety Report 9181278 (Version 2)
Quarter: 2013Q1

REPORT INFORMATION
  Report Type: Spontaneous
  Country: US (occurrence: US)
  Receive Date: 20130322
  Receipt Date: 20130322
  Transmission Date: 20140127
  Serious: No
  Sender: FDA-Public Use
  Company Number: US-MYLANLABS-2013S1000579

PATIENT
  Age: 69 Year
  Sex: Female

DRUGS (9)
  1. EMSAM [Suspect]
     Indication: DEPRESSION
     Route: 062
     Dates: start: 2009, end: 20130111
  2. EMSAM [Suspect]
     Indication: DYSTHYMIC DISORDER
     Route: 062
     Dates: start: 2009, end: 20130111
  3. EMSAM [Suspect]
     Indication: DEPRESSION
     Route: 062
     Dates: start: 20130120
  4. EMSAM [Suspect]
     Indication: DYSTHYMIC DISORDER
     Route: 062
     Dates: start: 20130120
  5. TRIAMCINOLONE ACETONIDE [Suspect]
     Indication: DRY SKIN
     Route: 061
     Dates: start: 2011
  6. NORVASC [Suspect]
     Indication: BLOOD PRESSURE INCREASED
     Route: 048
     Dates: start: 201211
  7. LASIX [Suspect]
     Indication: FLUID RETENTION
     Route: 048
     Dates: start: 201211
  8. OMEPRAZOLE [Concomitant]
     Indication: GASTROOESOPHAGEAL REFLUX DISEASE
  9. ALPRAZOLAM [Concomitant]
     Indication: ANXIETY

REACTIONS (6)
  - Application site pain [Recovered/Resolved]
  - Application site erythema [Recovered/Resolved]
  - Application site pruritus [Not Recovered/Not Resolved]
  - Dermatitis contact [Recovered/Resolved]
  - Application site inflammation [Not Recovered/Not Resolved]
  - Urticaria [Not Recovered/Not Resolved]
